FAERS Safety Report 10205390 (Version 2)
Quarter: 2015Q2

REPORT INFORMATION
  Report Type: Spontaneous
  Country: US (occurrence: US)
  Receive Date: 20140529
  Receipt Date: 20150604
  Transmission Date: 20150821
  Serious: No
  Sender: FDA-Public Use
  Company Number: US-SA-2014SA049811

PATIENT
  Age: 84 Year
  Sex: Female

DRUGS (9)
  1. SOLOSTAR [Concomitant]
     Active Substance: DEVICE
     Dates: start: 2006
  2. NOVOLOG [Concomitant]
     Active Substance: INSULIN ASPART
  3. NEXIUM [Concomitant]
     Active Substance: ESOMEPRAZOLE MAGNESIUM
     Dosage: 40 ML
  4. SIMVASTATIN. [Concomitant]
     Active Substance: SIMVASTATIN
  5. AMLODIPINE [Concomitant]
     Active Substance: AMLODIPINE BESYLATE
  6. ASPIRIN. [Concomitant]
     Active Substance: ASPIRIN
  7. DIOVAN [Concomitant]
     Active Substance: VALSARTAN
  8. LANTUS SOLOSTAR [Suspect]
     Active Substance: INSULIN GLARGINE
     Indication: TYPE 2 DIABETES MELLITUS
     Dosage: DOSE:35 UNIT(S)
     Route: 065
     Dates: start: 2008
  9. LANTUS SOLOSTAR [Suspect]
     Active Substance: INSULIN GLARGINE
     Indication: TYPE 2 DIABETES MELLITUS
     Dosage: DOSE:34 UNIT(S)
     Route: 065
     Dates: start: 2006

REACTIONS (3)
  - Visual acuity reduced [Recovered/Resolved]
  - Injection site bruising [Unknown]
  - Injection site pain [Unknown]
